FAERS Safety Report 7790588-5 (Version None)
Quarter: 2011Q3

REPORT INFORMATION
  Report Type: 
  Country: None (occurrence: None)
  Receive Date: 20110930
  Receipt Date: 20110927
  Transmission Date: 20111222
  Serious: No
  Sender: FDA-Public Use
  Company Number: US-TEVA-302869USA

PATIENT
  Age: 70 Year
  Sex: Male

DRUGS (4)
  1. PRAMIPEXOLE DIHYDROCHLORIDE [Concomitant]
  2. MULTI-VITAMINS [Concomitant]
  3. SINEMET [Concomitant]
  4. AZILECT [Suspect]
     Dates: start: 20101201, end: 20110601

REACTIONS (5)
  - DYSPNOEA [None]
  - ANXIETY [None]
  - CHEST DISCOMFORT [None]
  - DIZZINESS [None]
  - GAIT DISTURBANCE [None]
